FAERS Safety Report 6091036-6 (Version None)
Quarter: 2009Q1

REPORT INFORMATION
  Report Type: 
  Country: None (occurrence: None)
  Receive Date: 20090225
  Receipt Date: 20090220
  Transmission Date: 20090719
  Serious: Yes (Death, Hospitalization)
  Sender: FDA-Public Use
  Company Number: PHHY2009JP02481

PATIENT
  Age: 36 Year
  Sex: Male

DRUGS (8)
  1. CYCLOSPORINE [Suspect]
     Indication: STEM CELL TRANSPLANT
  2. TACROLIMUS [Suspect]
     Indication: STEM CELL TRANSPLANT
  3. PREDNISOLONE [Suspect]
     Dosage: 0.5 MG/KG
  4. STEROIDS NOS [Suspect]
  5. METHOTREXATE [Concomitant]
     Indication: STEM CELL TRANSPLANT
  6. METHOTREXATE [Concomitant]
     Indication: PROPHYLAXIS AGAINST GRAFT VERSUS HOST DISEASE
  7. CYCLOPHOSPHAMIDE [Concomitant]
     Dosage: UNK
     Dates: start: 20060501
  8. IRRADIATION [Concomitant]
     Dosage: UNK
     Dates: start: 20060501

REACTIONS (16)
  - ANAEMIA [None]
  - CHRONIC GRAFT VERSUS HOST DISEASE [None]
  - CYTOMEGALOVIRUS INFECTION [None]
  - DIABETES MELLITUS [None]
  - DIARRHOEA [None]
  - EATING DISORDER [None]
  - EOSINOPHILIA [None]
  - FUNGAL INFECTION [None]
  - GASTRIC HAEMORRHAGE [None]
  - HYPERTENSION [None]
  - PNEUMONIA ASPIRATION [None]
  - RED BLOOD CELL ABNORMALITY [None]
  - RESPIRATORY FAILURE [None]
  - THROMBOCYTOPENIA [None]
  - THROMBOTIC MICROANGIOPATHY [None]
  - TREATMENT NONCOMPLIANCE [None]
